FAERS Safety Report 12416920 (Version 1)
Quarter: 2016Q2

REPORT INFORMATION
  Report Type: Spontaneous
  Country: IS (occurrence: IS)
  Receive Date: 20160530
  Receipt Date: 20160530
  Transmission Date: 20160815
  Serious: Yes (Other)
  Sender: FDA-Public Use
  Company Number: IS-JNJFOC-20130707461

PATIENT
  Age: 8 Year
  Sex: Male

DRUGS (1)
  1. CONCERTA [Suspect]
     Active Substance: METHYLPHENIDATE HYDROCHLORIDE
     Indication: ATTENTION DEFICIT/HYPERACTIVITY DISORDER
     Route: 048
     Dates: start: 201204, end: 201303

REACTIONS (5)
  - Depression [Unknown]
  - Feeling abnormal [Unknown]
  - Attention deficit/hyperactivity disorder [Recovering/Resolving]
  - Tourette^s disorder [Recovering/Resolving]
  - Obsessive thoughts [Unknown]

NARRATIVE: CASE EVENT DATE: 201212
